FAERS Safety Report 18150393 (Version 1)
Quarter: 2020Q3

REPORT INFORMATION
  Report Type: Spontaneous
  Country: US (occurrence: US)
  Receive Date: 20200814
  Receipt Date: 20200814
  Transmission Date: 20201103
  Serious: Yes (Hospitalization)
  Sender: FDA-Public Use
  Company Number: None

PATIENT
  Age: 66 Year
  Sex: Female

DRUGS (10)
  1. AMOXICILLIN. [Concomitant]
     Active Substance: AMOXICILLIN
  2. TYLENOL [Concomitant]
     Active Substance: ACETAMINOPHEN
  3. CALCIUM [Concomitant]
     Active Substance: CALCIUM
  4. NEUPOGEN [Suspect]
     Active Substance: FILGRASTIM
     Indication: HYPOTHYROIDISM
     Dosage: ?          OTHER FREQUENCY:EVERY 21 DAYS;?
     Route: 058
  5. DRONABINOL. [Concomitant]
     Active Substance: DRONABINOL
  6. LEVOTHYROXINE. [Concomitant]
     Active Substance: LEVOTHYROXINE
  7. METRONIDAZOLE. [Concomitant]
     Active Substance: METRONIDAZOLE
  8. ELIQUIS [Concomitant]
     Active Substance: APIXABAN
  9. HYDROCHLOROTHIAZIDE. [Concomitant]
     Active Substance: HYDROCHLOROTHIAZIDE
  10. PANTOPRAZOLE [Concomitant]
     Active Substance: PANTOPRAZOLE

REACTIONS (2)
  - Therapy interrupted [None]
  - Emergency care [None]

NARRATIVE: CASE EVENT DATE: 20200813
